FAERS Safety Report 14583521 (Version 1)
Quarter: 2018Q1

REPORT INFORMATION
  Report Type: Report from Study
  Country: US (occurrence: US)
  Receive Date: 20180228
  Receipt Date: 20180228
  Transmission Date: 20180509
  Serious: No
  Sender: FDA-Public Use
  Company Number: PHEH2018US007961

PATIENT
  Sex: Female

DRUGS (1)
  1. COSENTYX [Suspect]
     Active Substance: SECUKINUMAB
     Indication: PSORIASIS
     Route: 058

REACTIONS (7)
  - Fibromyalgia [Unknown]
  - Skin discolouration [Unknown]
  - Gait inability [Unknown]
  - Injury [Unknown]
  - General physical health deterioration [Unknown]
  - Pain [Unknown]
  - Pain in extremity [Unknown]
